FAERS Safety Report 21972310 (Version 3)
Quarter: 2023Q1

REPORT INFORMATION
  Report Type: Spontaneous
  Country: CO (occurrence: CO)
  Receive Date: 20230209
  Receipt Date: 20230313
  Transmission Date: 20230418
  Serious: Yes (Other)
  Sender: FDA-Public Use
  Company Number: CO-JNJFOC-20230165444

PATIENT
  Sex: Female

DRUGS (1)
  1. PREZCOBIX [Suspect]
     Active Substance: COBICISTAT\DARUNAVIR ETHANOLATE
     Indication: HIV infection
     Dosage: BARCODE NUMBER: 77031451818127,  7703145120086, 800.00 MG / 150.00 MG
     Route: 048

REACTIONS (4)
  - Blood HIV RNA increased [Unknown]
  - Suspected counterfeit product [Unknown]
  - Blood cholesterol increased [Unknown]
  - Product label issue [Unknown]

NARRATIVE: CASE EVENT DATE: 20230128
